FAERS Safety Report 24977216 (Version 2)
Quarter: 2025Q2

REPORT INFORMATION
  Report Type: Spontaneous
  Country: AT (occurrence: AT)
  Receive Date: 20250217
  Receipt Date: 20250418
  Transmission Date: 20250716
  Serious: Yes (Hospitalization, Other)
  Sender: SERVIER
  Company Number: AT-SERVIER-S25001338

PATIENT

DRUGS (2)
  1. TIBSOVO [Suspect]
     Active Substance: IVOSIDENIB
     Indication: Cholangiocarcinoma
     Dosage: 500 MG, QD
     Route: 048
     Dates: start: 20241130, end: 20241211
  2. TIBSOVO [Suspect]
     Active Substance: IVOSIDENIB
     Dosage: 250 MG, QD
     Route: 048
     Dates: start: 20241223, end: 20250113

REACTIONS (10)
  - Differentiation syndrome [Recovered/Resolved]
  - Oedema peripheral [Recovered/Resolved]
  - Leukocytosis [Recovered/Resolved]
  - General physical health deterioration [Recovered/Resolved]
  - Hypotension [Recovered/Resolved]
  - Pleural effusion [Recovered/Resolved]
  - Blood bilirubin increased [Recovered/Resolved]
  - Ascites [Recovered/Resolved]
  - Drug tolerance decreased [Recovered/Resolved]
  - Malignant neoplasm progression [Unknown]

NARRATIVE: CASE EVENT DATE: 20241211
